FAERS Safety Report 5659426-0 (Version None)
Quarter: 2008Q1

REPORT INFORMATION
  Report Type: 
  Country: None (occurrence: None)
  Receive Date: 20080311
  Receipt Date: 20080222
  Transmission Date: 20080703
  Serious: Yes (Hospitalization)
  Sender: FDA-Public Use
  Company Number: ES-RANBAXY-2008RR-13300

PATIENT

DRUGS (3)
  1. VENLAFAXINA TERAPIA 75 MG [Suspect]
     Indication: DEPRESSION
     Dosage: 300 MG, QD
  2. LEVOFLOXACIN [Suspect]
  3. CORTICOSTEROID [Concomitant]

REACTIONS (2)
  - LIVER INJURY [None]
  - PNEUMONITIS [None]
